FAERS Safety Report 4984822-4 (Version None)
Quarter: 2006Q2

REPORT INFORMATION
  Report Type: 
  Country: None (occurrence: None)
  Receive Date: 20060426
  Receipt Date: 20060426
  Transmission Date: 20061013
  Serious: Yes (Life-Threatening, Other)
  Sender: FDA-Public Use
  Company Number: None

PATIENT
  Age: 31 Year
  Sex: Female
  Weight: 65.7716 kg

DRUGS (1)
  1. ZYRTEC [Suspect]
     Dosage: 24 HOUR TABLET   1 TIME PER DAY  PO
     Route: 048
     Dates: start: 19980601, end: 20060420

REACTIONS (7)
  - DRUG WITHDRAWAL SYNDROME [None]
  - IRRITABILITY [None]
  - PAIN [None]
  - PRURITUS [None]
  - RASH [None]
  - THINKING ABNORMAL [None]
  - URTICARIA [None]
